FAERS Safety Report 12546248 (Version 2)
Quarter: 2016Q3

REPORT INFORMATION
  Report Type: Report from Study
  Country: DE (occurrence: DE)
  Receive Date: 20160711
  Receipt Date: 20160715
  Transmission Date: 20161109
  Serious: Yes (Hospitalization)
  Sender: FDA-Public Use
  Company Number: DE-TAKEDA-2016TUS011675

PATIENT
  Sex: Female
  Weight: 61 kg

DRUGS (3)
  1. CORTIMENT                          /00614601/ [Concomitant]
     Indication: COLITIS ULCERATIVE
     Dosage: 9 MG, QD
     Dates: start: 20151209, end: 20160310
  2. MEZAVANT [Concomitant]
     Active Substance: MESALAMINE
     Indication: COLITIS ULCERATIVE
     Dosage: 3.6 G, QD
  3. VEDOLIZUMAB [Suspect]
     Active Substance: VEDOLIZUMAB
     Indication: COLITIS ULCERATIVE
     Dosage: 300 MG, UNK
     Route: 042
     Dates: start: 20151125

REACTIONS (2)
  - Pyrexia [Recovered/Resolved]
  - Bordetella infection [Recovered/Resolved]

NARRATIVE: CASE EVENT DATE: 201601
